FAERS Safety Report 7870156-7 (Version None)
Quarter: 2011Q4

REPORT INFORMATION
  Report Type: 
  Country: None (occurrence: None)
  Receive Date: 20111028
  Receipt Date: 20110114
  Transmission Date: 20120403
  Serious: No
  Sender: FDA-Public Use
  Company Number: US-AMGEN-USASP2011002490

PATIENT
  Age: 46 Year
  Sex: Male

DRUGS (4)
  1. TACLONEX [Concomitant]
  2. ENBREL [Suspect]
     Indication: PRODUCT USED FOR UNKNOWN INDICATION
     Dosage: 50 MG, 2 TIMES/WK
     Route: 058
  3. METHOTREXATE [Concomitant]
     Dosage: 2.5 MG, UNK
  4. FLUOCINOLON AC [Concomitant]

REACTIONS (3)
  - DEFAECATION URGENCY [None]
  - MICTURITION URGENCY [None]
  - CYST [None]
